FAERS Safety Report 13292795 (Version 1)
Quarter: 2017Q1

REPORT INFORMATION
  Report Type: Spontaneous
  Country: US (occurrence: US)
  Receive Date: 20170303
  Receipt Date: 20170303
  Transmission Date: 20170428
  Serious: Yes (Hospitalization, Other)
  Sender: FDA-Public Use
  Company Number: US-WEST-WARD PHARMACEUTICALS CORP.-US-H14001-17-00593

PATIENT
  Age: 58 Year
  Sex: Male
  Weight: 90.8 kg

DRUGS (2)
  1. PREDNISONE. [Suspect]
     Active Substance: PREDNISONE
     Indication: OCULAR HYPERAEMIA
     Route: 048
     Dates: start: 201607
  2. PREDNISONE. [Suspect]
     Active Substance: PREDNISONE
     Indication: EYE PRURITUS
     Route: 048
     Dates: start: 201604, end: 20160829

REACTIONS (3)
  - Presyncope [Recovered/Resolved]
  - Blood glucose increased [Not Recovered/Not Resolved]
  - Blindness unilateral [Not Recovered/Not Resolved]

NARRATIVE: CASE EVENT DATE: 20160829
